FAERS Safety Report 5314849-4 (Version None)
Quarter: 2007Q2

REPORT INFORMATION
  Report Type: 
  Country: None (occurrence: None)
  Receive Date: 20070426
  Receipt Date: 20070412
  Transmission Date: 20071010
  Serious: Yes (Hospitalization)
  Sender: FDA-Public Use
  Company Number: US-CVT-070079

PATIENT
  Age: 85 Year
  Sex: Male

DRUGS (11)
  1. RANEXA [Suspect]
     Indication: ANGINA PECTORIS
     Dosage: 500 MG, BID, ORAL
     Route: 048
     Dates: start: 20070301
  2. COREG [Concomitant]
  3. CADUET (AMLODIPINE AND ATORVASTATIN) [Concomitant]
  4. POTASSIUM (POTASSIUM) [Concomitant]
  5. METFORMIN HCL [Concomitant]
  6. NITROSTAT [Concomitant]
  7. LISINOPRIL [Concomitant]
  8. NITROGLYCERIN [Concomitant]
  9. LASIX [Concomitant]
  10. MICRONASE [Concomitant]
  11. COUMADIN [Concomitant]

REACTIONS (4)
  - ANAEMIA [None]
  - CARDIAC FAILURE CONGESTIVE [None]
  - DIABETIC GASTROPARESIS [None]
  - PULMONARY ALVEOLAR HAEMORRHAGE [None]
